FAERS Safety Report 6069270-0 (Version None)
Quarter: 2009Q1

REPORT INFORMATION
  Report Type: 
  Country: None (occurrence: None)
  Receive Date: 20090206
  Receipt Date: 20090128
  Transmission Date: 20090719
  Serious: Yes (Hospitalization)
  Sender: FDA-Public Use
  Company Number: US-BAXTER-2008BH009578

PATIENT
  Age: 67 Year
  Sex: Male

DRUGS (3)
  1. DIANEAL [Suspect]
     Indication: RENAL FAILURE CHRONIC
     Dosage: DOSE UNIT:UNKNOWN
     Route: 033
     Dates: end: 20080908
  2. DIANEAL [Suspect]
     Route: 033
     Dates: end: 20081201
  3. INSULIN [Concomitant]
     Indication: DRUG USE FOR UNKNOWN INDICATION
     Route: 065

REACTIONS (4)
  - ABDOMINAL PAIN UPPER [None]
  - INFECTION [None]
  - PERITONEAL DIALYSIS COMPLICATION [None]
  - WOUND INFECTION [None]
